FAERS Safety Report 4955798-0 (Version None)
Quarter: 2006Q1

REPORT INFORMATION
  Report Type: 
  Country: None (occurrence: None)
  Receive Date: 20060328
  Receipt Date: 20060316
  Transmission Date: 20060701
  Serious: Yes (Life-Threatening, Hospitalization, Other)
  Sender: FDA-Public Use
  Company Number: FR-JNJFOC-20060200605

PATIENT
  Sex: Male
  Weight: 69 kg

DRUGS (9)
  1. REMINYL [Suspect]
     Indication: VASCULAR DEMENTIA
     Route: 048
  2. MOPRAL [Concomitant]
     Indication: OESOPHAGITIS
     Route: 065
  3. LEVOTHYROX [Concomitant]
     Indication: HYPOTHYROIDISM
     Route: 065
  4. FORLAX [Concomitant]
     Indication: CONSTIPATION
     Dosage: 2 DOSES = 2 SACKS
     Route: 065
  5. PREVISCAN [Concomitant]
     Route: 065
  6. LANSOYL [Concomitant]
     Indication: CONSTIPATION
     Route: 065
  7. TIENAM [Concomitant]
     Route: 065
  8. TIENAM [Concomitant]
     Indication: ESCHERICHIA URINARY TRACT INFECTION
     Route: 065
  9. AMIKLIN [Concomitant]
     Indication: ESCHERICHIA URINARY TRACT INFECTION
     Route: 065

REACTIONS (2)
  - DRUG RESISTANCE [None]
  - STATUS EPILEPTICUS [None]
